FAERS Safety Report 23624120 (Version 1)
Quarter: 2024Q1

REPORT INFORMATION
  Report Type: Report from Study
  Country: US (occurrence: None)
  Receive Date: 20240312
  Receipt Date: 20240312
  Transmission Date: 20240410
  Serious: Yes (Disabling)
  Sender: FDA-Public Use
  Company Number: 2024A057865

PATIENT
  Sex: Male

DRUGS (2)
  1. FARXIGA [Suspect]
     Active Substance: DAPAGLIFLOZIN PROPANEDIOL
     Route: 048
  2. BYDUREON BCISE [Suspect]
     Active Substance: EXENATIDE

REACTIONS (7)
  - Depression [Unknown]
  - Anxiety disorder [Unknown]
  - Irritable bowel syndrome [Unknown]
  - Carpal tunnel syndrome [Unknown]
  - Diabetes mellitus [Unknown]
  - Hypertension [Unknown]
  - Hepatic steatosis [Unknown]
